FAERS Safety Report 26060331 (Version 1)
Quarter: 2025Q4

REPORT INFORMATION
  Report Type: Spontaneous
  Country: US (occurrence: US)
  Receive Date: 20251118
  Receipt Date: 20251118
  Transmission Date: 20260118
  Serious: No
  Sender: GILEAD
  Company Number: US-GILEAD-2025-0736424

PATIENT
  Age: 40 Year
  Sex: Male

DRUGS (2)
  1. TRODELVY [Suspect]
     Active Substance: SACITUZUMAB GOVITECAN-HZIY
     Indication: Salivary gland cancer
     Dosage: 900 MG
     Route: 065
     Dates: start: 20251111
  2. TRODELVY [Suspect]
     Active Substance: SACITUZUMAB GOVITECAN-HZIY
     Dosage: 900 MG
     Route: 065
     Dates: start: 20251111

REACTIONS (1)
  - Product prescribing issue [Unknown]
